FAERS Safety Report 7502505-3 (Version None)
Quarter: 2011Q2

REPORT INFORMATION
  Report Type: 
  Country: None (occurrence: None)
  Receive Date: 20110525
  Receipt Date: 20110516
  Transmission Date: 20111010
  Serious: Yes (Other)
  Sender: FDA-Public Use
  Company Number: BR-JNJFOC-20110509489

PATIENT
  Age: 79 Year
  Sex: Female
  Weight: 69.2 kg

DRUGS (3)
  1. ACETAMINOPHEN AND CODEINE PHOSPHATE [Suspect]
     Indication: ANALGESIC THERAPY
     Route: 048
     Dates: start: 20110513, end: 20110514
  2. SIMVASTATIN [Concomitant]
     Route: 065
  3. ENALAPRIL MALEATE [Suspect]
     Indication: HYPERTENSION
     Route: 065

REACTIONS (5)
  - ABDOMINAL PAIN [None]
  - VOMITING [None]
  - TREATMENT NONCOMPLIANCE [None]
  - HYPERTENSION [None]
  - ABDOMINAL PAIN UPPER [None]
